FAERS Safety Report 13174231 (Version 1)
Quarter: 2017Q1

REPORT INFORMATION
  Report Type: Report from Study
  Country: CA (occurrence: CA)
  Receive Date: 20170201
  Receipt Date: 20170201
  Transmission Date: 20170428
  Serious: Yes (Death, Other)
  Sender: FDA-Public Use
  Company Number: CA-BAYER-2016-244040

PATIENT
  Age: 77 Year
  Sex: Male
  Weight: 90.7 kg

DRUGS (8)
  1. ADEMPAS [Suspect]
     Active Substance: RIOCIGUAT
     Indication: PULMONARY HYPERTENSION
     Dosage: 2.5 MG, TID
     Route: 048
  2. LISINOPRIL. [Concomitant]
     Active Substance: LISINOPRIL
     Dosage: UNK
  3. ALLOPURINOL. [Concomitant]
     Active Substance: ALLOPURINOL
     Dosage: UNK
  4. ADEMPAS [Suspect]
     Active Substance: RIOCIGUAT
     Indication: PULMONARY HYPERTENSION
     Dosage: 2 MG, TID
     Dates: start: 20161123
  5. COUMADIN [Concomitant]
     Active Substance: WARFARIN SODIUM
     Dosage: UNK
  6. REMICADE [Concomitant]
     Active Substance: INFLIXIMAB
     Dosage: UNK
  7. LIPITOR [Concomitant]
     Active Substance: ATORVASTATIN CALCIUM
     Dosage: UNK
  8. LIPIDIL [Concomitant]
     Active Substance: FENOFIBRATE
     Dosage: UNK

REACTIONS (6)
  - Death [Fatal]
  - Abdominal distension [None]
  - Heart rate increased [None]
  - Dyspnoea [None]
  - Peripheral swelling [None]
  - Blood pressure decreased [None]

NARRATIVE: CASE EVENT DATE: 20161123
